FAERS Safety Report 9354663 (Version 1)
Quarter: 2013Q2

REPORT INFORMATION
  Report Type: Spontaneous
  Country: US (occurrence: US)
  Receive Date: 20130618
  Receipt Date: 20130618
  Transmission Date: 20140414
  Serious: No
  Sender: FDA-Public Use
  Company Number: US-009507513-1305USA005358

PATIENT
  Sex: 0

DRUGS (2)
  1. PEG-INTRON [Suspect]
     Indication: HEPATITIS C
     Dosage: UNK, REDIPEN
     Dates: start: 20121206, end: 20130516
  2. REBETOL [Suspect]
     Indication: HEPATITIS C
     Dosage: UNK
     Route: 048
     Dates: start: 20121206, end: 20130516

REACTIONS (2)
  - Malaise [Unknown]
  - Circumstance or information capable of leading to medication error [Unknown]
